FAERS Safety Report 16591422 (Version 6)
Quarter: 2022Q1

REPORT INFORMATION
  Report Type: Spontaneous
  Country: US (occurrence: US)
  Receive Date: 20190718
  Receipt Date: 20220222
  Transmission Date: 20220424
  Serious: Yes (Other)
  Sender: FDA-Public Use
  Company Number: US-PFIZER INC-2019301689

PATIENT
  Age: 70 Year
  Sex: Female
  Weight: 55.34 kg

DRUGS (1)
  1. IBRANCE [Suspect]
     Active Substance: PALBOCICLIB
     Indication: Breast cancer metastatic
     Dosage: 75 MG, CYCLIC (DAILY FOR 3 WEEKS AND SKIP 1 WEEK)
     Route: 048

REACTIONS (5)
  - Fatigue [Not Recovered/Not Resolved]
  - Product dose omission issue [Unknown]
  - Balance disorder [Unknown]
  - Gait disturbance [Unknown]
  - Hypoacusis [Unknown]
